FAERS Safety Report 8451720-3 (Version None)
Quarter: 2012Q2

REPORT INFORMATION
  Report Type: 
  Country: None (occurrence: None)
  Receive Date: 20120620
  Receipt Date: 20120313
  Transmission Date: 20120825
  Serious: No
  Sender: FDA-Public Use
  Company Number: US-VERTEX PHARMACEUTICALS INC.-AE-2012-003710

PATIENT
  Sex: Male
  Weight: 81.72 kg

DRUGS (4)
  1. INCIVEK [Suspect]
     Indication: HEPATITIS C
     Route: 048
     Dates: start: 20120309
  2. PEGASYS [Concomitant]
     Indication: HEPATITIS C
     Route: 058
     Dates: start: 20120309
  3. IBUPROFEN (ADVIL) [Concomitant]
     Indication: DISCOMFORT
     Route: 048
  4. RIBAVIRIN [Concomitant]
     Indication: HEPATITIS C
     Route: 048
     Dates: start: 20120309

REACTIONS (5)
  - FLUSHING [None]
  - RASH PAPULAR [None]
  - DIARRHOEA [None]
  - PRURITUS [None]
  - ANORECTAL DISCOMFORT [None]
